FAERS Safety Report 17008766 (Version 1)
Quarter: 2019Q4

REPORT INFORMATION
  Report Type: Spontaneous
  Country: US (occurrence: US)
  Receive Date: 20191108
  Receipt Date: 20191108
  Transmission Date: 20200122
  Serious: Yes (Other)
  Sender: FDA-Public Use
  Company Number: US-MYLANLABS-2019M1105232

PATIENT
  Age: 40 Year
  Sex: Female

DRUGS (3)
  1. CETIRIZINE [Suspect]
     Active Substance: CETIRIZINE HYDROCHLORIDE
     Indication: ANGIOEDEMA
     Dosage: ADMINISTERED TWICE DAILY
     Route: 065
  2. LORATADINE. [Suspect]
     Active Substance: LORATADINE
     Indication: ANGIOEDEMA
     Dosage: ADMINISTERED TWICE DAILY
     Route: 065
  3. FAMOTIDINE. [Suspect]
     Active Substance: FAMOTIDINE
     Indication: ANGIOEDEMA
     Dosage: ADMINISTERED TWICE DAILY
     Route: 065

REACTIONS (1)
  - Drug ineffective [Unknown]
